FAERS Safety Report 13583161 (Version 3)
Quarter: 2017Q2

REPORT INFORMATION
  Report Type: Report from Study
  Country: AU (occurrence: AU)
  Receive Date: 20170525
  Receipt Date: 20170531
  Transmission Date: 20170830
  Serious: Yes (Hospitalization, Other)
  Sender: FDA-Public Use
  Company Number: AU-REGENERON PHARMACEUTICALS, INC.-2017-13337

PATIENT

DRUGS (2)
  1. SIMVASTATIN. [Concomitant]
     Active Substance: SIMVASTATIN
     Indication: ARTERIOSCLEROSIS
  2. EYLEA [Suspect]
     Active Substance: AFLIBERCEPT
     Indication: DIABETIC RETINAL OEDEMA
     Dosage: TOTAL OF 4 EYLEA
     Route: 031
     Dates: start: 20160610, end: 20161111

REACTIONS (4)
  - Pulmonary oedema [Unknown]
  - Myocardial infarction [Recovered/Resolved]
  - Renal injury [Unknown]
  - Melaena [Unknown]

NARRATIVE: CASE EVENT DATE: 20161124
